FAERS Safety Report 18109359 (Version 1)
Quarter: 2020Q3

REPORT INFORMATION
  Report Type: Spontaneous
  Country: US (occurrence: US)
  Receive Date: 20200804
  Receipt Date: 20200804
  Transmission Date: 20201103
  Serious: Yes (Hospitalization)
  Sender: FDA-Public Use
  Company Number: None

PATIENT
  Age: 79 Year
  Sex: Female
  Weight: 54 kg

DRUGS (10)
  1. INSULIN [Concomitant]
     Active Substance: INSULIN NOS
  2. LOPRESSOR [Concomitant]
     Active Substance: METOPROLOL TARTRATE
  3. NORVASC [Concomitant]
     Active Substance: AMLODIPINE BESYLATE
  4. VITAMINS [Concomitant]
     Active Substance: VITAMINS
  5. PRILOSEC [Concomitant]
     Active Substance: OMEPRAZOLE MAGNESIUM
  6. TYLENOL [Concomitant]
     Active Substance: ACETAMINOPHEN
  7. BABY ASPIRIN [Concomitant]
     Active Substance: ASPIRIN
  8. ZETIA [Concomitant]
     Active Substance: EZETIMIBE
  9. CIPROFLOXACIN. [Suspect]
     Active Substance: CIPROFLOXACIN
     Indication: BACTERIAL INFECTION
     Dosage: ?          QUANTITY:1 TABLET(S);?
     Route: 048
  10. CRANBERRY. [Concomitant]
     Active Substance: CRANBERRY

REACTIONS (2)
  - Dialysis [None]
  - Renal failure [None]
